FAERS Safety Report 11653423 (Version 1)
Quarter: 2015Q4

REPORT INFORMATION
  Report Type: Other
  Country: US (occurrence: US)
  Receive Date: 20151022
  Receipt Date: 20151022
  Transmission Date: 20160304
  Serious: No
  Sender: FDA-Public Use
  Company Number: US-DEP_08100_2015

PATIENT
  Sex: Female

DRUGS (1)
  1. NUCYNTA ER [Suspect]
     Active Substance: TAPENTADOL HYDROCHLORIDE
     Indication: FEELING ABNORMAL
     Dosage: 100 MG, UNK
     Route: 048

REACTIONS (1)
  - Feeling abnormal [Not Recovered/Not Resolved]
